FAERS Safety Report 14469647 (Version 1)
Quarter: 2018Q1

REPORT INFORMATION
  Report Type: Spontaneous
  Country: US (occurrence: US)
  Receive Date: 20180131
  Receipt Date: 20180131
  Transmission Date: 20180509
  Serious: No
  Sender: FDA-Public Use
  Company Number: US-GUERBET-US-20170228

PATIENT
  Age: 71 Year
  Sex: Male
  Weight: 106.5 kg

DRUGS (6)
  1. CARBOXYMETHYLCELLULOSE NA 0.5% OPHTHALMIC SOLUTION [Concomitant]
     Indication: PRODUCT USED FOR UNKNOWN INDICATION
     Dosage: INSTILL 1 DROP IN EACH EYE THREE TIMES A DAY
     Route: 047
  2. DOTAREM [Suspect]
     Active Substance: GADOTERATE MEGLUMINE
     Indication: NUCLEAR MAGNETIC RESONANCE IMAGING
     Route: 042
     Dates: start: 20171120, end: 20171120
  3. ATENOLOL. [Concomitant]
     Active Substance: ATENOLOL
     Indication: PRODUCT USED FOR UNKNOWN INDICATION
     Dosage: ONE TABLET BY MOUTH EVERY DAY
     Route: 048
  4. OMEPRAZOLE. [Concomitant]
     Active Substance: OMEPRAZOLE
     Indication: PRODUCT USED FOR UNKNOWN INDICATION
     Dosage: TAKE ONE CAPSULE BY MOUTH EVERY MORNING, ON AN EMPTY STOMACH
     Route: 048
  5. TRIAMCINOLONE ACETONIDE 0.1% CREAM [Concomitant]
     Indication: PRODUCT USED FOR UNKNOWN INDICATION
     Dosage: APPLY A SUFFICIENT AMOUNT EXTERNALLY TWICE A DAY TO RIGHT GROIN AREA
     Route: 061
  6. HYDROPHILIC TOP CREAM [Concomitant]
     Indication: DRY SKIN
     Dosage: APPLY A SUFFICIENT AMOUNT EXTERNALLY TWICE A DAY AS NEEDED TO DRY SKIN ON LEGS
     Route: 061

REACTIONS (3)
  - Urticaria [Recovered/Resolved]
  - Nausea [Recovered/Resolved]
  - Pruritus [Recovered/Resolved]

NARRATIVE: CASE EVENT DATE: 20171120
